FAERS Safety Report 20683162 (Version 4)
Quarter: 2023Q1

REPORT INFORMATION
  Report Type: Report from Study
  Country: CA (occurrence: CA)
  Receive Date: 20220407
  Receipt Date: 20230307
  Transmission Date: 20230417
  Serious: Yes (Other)
  Sender: FDA-Public Use
  Company Number: CA-NOVARTISPH-NVSC2022CA072329

PATIENT
  Age: 61 Year
  Sex: Female

DRUGS (5)
  1. METHOTREXATE [Suspect]
     Active Substance: METHOTREXATE
     Indication: Product used for unknown indication
     Dosage: UNK
     Route: 065
     Dates: start: 2001, end: 2001
  2. ENBREL [Concomitant]
     Active Substance: ETANERCEPT
     Indication: Product used for unknown indication
     Dosage: UNK
     Route: 065
     Dates: start: 2001, end: 2010
  3. HYDROXYCHLOROQUINE [Concomitant]
     Active Substance: HYDROXYCHLOROQUINE
     Indication: Product used for unknown indication
     Dosage: UNK UNK, BID
     Route: 065
     Dates: start: 2001, end: 2010
  4. PREDNISONE [Concomitant]
     Active Substance: PREDNISONE
     Indication: Product used for unknown indication
     Dosage: UNK
     Route: 048
  5. SULFASALAZINE [Concomitant]
     Active Substance: SULFASALAZINE
     Indication: Product used for unknown indication
     Dosage: UNK
     Route: 065
     Dates: start: 2001, end: 2001

REACTIONS (6)
  - Rheumatoid arthritis [Unknown]
  - Ill-defined disorder [Unknown]
  - Drug intolerance [Unknown]
  - Nausea [Unknown]
  - Abdominal pain upper [Unknown]
  - Adverse event [Unknown]

NARRATIVE: CASE EVENT DATE: 20220401
